FAERS Safety Report 15544675 (Version 6)
Quarter: 2019Q3

REPORT INFORMATION
  Report Type: Report from Study
  Country: BR (occurrence: BR)
  Receive Date: 20181024
  Receipt Date: 20190923
  Transmission Date: 20191004
  Serious: Yes (Life-Threatening, Other)
  Sender: FDA-Public Use
  Company Number: BR-ROCHE-2203431

PATIENT
  Age: 62 Year
  Sex: Female
  Weight: 58 kg

DRUGS (4)
  1. CORTICOSTEROIDS [Concomitant]
     Active Substance: CORTICOSTEROID NOS
  2. ACLASTA [Suspect]
     Active Substance: ZOLEDRONIC ACID
     Indication: OSTEOPOROSIS
     Dosage: PER YEARS
     Route: 065
     Dates: start: 201907, end: 201907
  3. XOLAIR [Suspect]
     Active Substance: OMALIZUMAB
     Route: 058
     Dates: start: 20180812
  4. XOLAIR [Suspect]
     Active Substance: OMALIZUMAB
     Indication: ASTHMA
     Route: 058
     Dates: start: 20180912

REACTIONS (28)
  - Hypersensitivity [Recovered/Resolved]
  - Bronchospasm [Unknown]
  - Fatigue [Recovered/Resolved]
  - Glossitis [Recovered/Resolved]
  - Finger deformity [Recovered/Resolved]
  - Aphthous ulcer [Recovering/Resolving]
  - Lumbar vertebral fracture [Recovered/Resolved]
  - Oral pain [Recovered/Resolved]
  - Mouth injury [Recovering/Resolving]
  - Anaphylactic shock [Recovered/Resolved]
  - Aphasia [Recovered/Resolved]
  - Pain in extremity [Recovered/Resolved]
  - Malaise [Recovered/Resolved]
  - Swelling [Recovered/Resolved]
  - Fall [Unknown]
  - Stomatitis [Unknown]
  - Asthenia [Not Recovered/Not Resolved]
  - Feeling abnormal [Recovered/Resolved]
  - Bone loss [Recovered/Resolved]
  - Chest discomfort [Recovered/Resolved]
  - Arthritis helminthic [Unknown]
  - Noninfective gingivitis [Recovered/Resolved]
  - Spinal disorder [Recovered/Resolved]
  - Lip pain [Recovered/Resolved]
  - Dysphonia [Not Recovered/Not Resolved]
  - Osteoporosis [Recovered/Resolved]
  - Arthralgia [Recovered/Resolved]
  - Oropharyngeal pain [Recovering/Resolving]

NARRATIVE: CASE EVENT DATE: 20180812
